FAERS Safety Report 15325129 (Version 1)
Quarter: 2018Q3

REPORT INFORMATION
  Report Type: Spontaneous
  Country: US (occurrence: US)
  Receive Date: 20180822
  Receipt Date: 20180822
  Transmission Date: 20181010
  Serious: No
  Sender: FDA-Public Use
  Company Number: None

PATIENT
  Age: 61 Year
  Sex: Male

DRUGS (2)
  1. RIBAVARIN [Concomitant]
     Active Substance: RIBAVIRIN
  2. VOSEVI [Suspect]
     Active Substance: SOFOSBUVIR\VELPATASVIR\VOXILAPREVIR
     Dosage: 400?100?100 DAILY ORAL
     Route: 048

REACTIONS (9)
  - Musculoskeletal pain [None]
  - Fatigue [None]
  - Pruritus [None]
  - Abdominal discomfort [None]
  - Nausea [None]
  - Insomnia [None]
  - Diarrhoea [None]
  - Headache [None]
  - Chronic obstructive pulmonary disease [None]

NARRATIVE: CASE EVENT DATE: 20180626
